FAERS Safety Report 19640026 (Version 1)
Quarter: 2021Q3

REPORT INFORMATION
  Report Type: Spontaneous
  Country: RO (occurrence: RO)
  Receive Date: 20210730
  Receipt Date: 20210730
  Transmission Date: 20211014
  Serious: Yes (Other)
  Sender: FDA-Public Use
  Company Number: RO-ELI_LILLY_AND_COMPANY-RO202107007977

PATIENT
  Age: 62 Year
  Sex: Male

DRUGS (3)
  1. PEMETREXED. [Suspect]
     Active Substance: PEMETREXED
     Indication: PRODUCT USED FOR UNKNOWN INDICATION
     Dosage: 800 MG, OTHER (EVERY 21 DAYS)
     Route: 065
  2. PEMBROLIZUMAB. [Suspect]
     Active Substance: PEMBROLIZUMAB
     Indication: PRODUCT USED FOR UNKNOWN INDICATION
     Dosage: 200 MG, OTHER (EVERY 21 DAYS)
     Route: 065
     Dates: start: 202001
  3. CARBOPLATIN. [Suspect]
     Active Substance: CARBOPLATIN
     Indication: PRODUCT USED FOR UNKNOWN INDICATION
     Dosage: 600 MG, OTHER (EVERY 21 DAYS)
     Route: 065

REACTIONS (5)
  - Immune-mediated enterocolitis [Unknown]
  - Immune-mediated enterocolitis [Unknown]
  - Immune-mediated thyroiditis [Unknown]
  - Skin toxicity [Unknown]
  - Haematotoxicity [Unknown]

NARRATIVE: CASE EVENT DATE: 202007
